FAERS Safety Report 5701748-9 (Version None)
Quarter: 2008Q2

REPORT INFORMATION
  Report Type: 
  Country: None (occurrence: None)
  Receive Date: 20080411
  Receipt Date: 20080331
  Transmission Date: 20081010
  Serious: Yes (Hospitalization, Other)
  Sender: FDA-Public Use
  Company Number: JP-WYE-H03527508

PATIENT
  Sex: Female
  Weight: 48 kg

DRUGS (11)
  1. AMIODARONE HCL [Suspect]
     Indication: VENTRICULAR TACHYCARDIA
     Dosage: 100 ML
     Route: 041
     Dates: start: 20080222, end: 20080222
  2. AMIODARONE HCL [Suspect]
     Indication: AORTIC VALVE REPLACEMENT
     Dosage: 33 ML/HOUR
     Route: 041
     Dates: start: 20080222, end: 20080222
  3. AMIODARONE HCL [Suspect]
     Dosage: 17 ML/HOUR
     Route: 041
     Dates: start: 20080222, end: 20080227
  4. AMIODARONE HCL [Suspect]
     Dosage: 8 ML/HOUR
     Route: 041
     Dates: start: 20080227, end: 20080228
  5. ELASPOL [Concomitant]
     Indication: INFECTION
     Dosage: 10.8 MG/HOUR
     Route: 041
     Dates: start: 20080221, end: 20080229
  6. NORADRENALINE [Concomitant]
     Indication: SHOCK
     Dosage: 0.42 MG/HOUR
     Route: 041
     Dates: start: 20080222, end: 20080229
  7. ISOSORBIDE DINITRATE [Concomitant]
     Indication: CARDIAC FAILURE ACUTE
     Route: 041
     Dates: start: 20080221, end: 20080222
  8. LIDOCAINE HYDROCHLORIDE [Concomitant]
     Indication: VENTRICULAR TACHYCARDIA
     Dosage: 50-60 MG/HOUR
     Route: 041
     Dates: start: 20080222
  9. SIGMART [Concomitant]
     Indication: CARDIAC FAILURE
     Dosage: 1.9 MG/HOUR
     Route: 041
     Dates: start: 20080221, end: 20080229
  10. NAFAMOSTAT MESILATE [Concomitant]
     Indication: DISSEMINATED INTRAVASCULAR COAGULATION
     Dosage: 30 - 40 MG/HOUR
     Route: 041
     Dates: start: 20080223, end: 20080225
  11. MEXITIL [Concomitant]
     Indication: VENTRICULAR TACHYCARDIA
     Dosage: 20 MG/HOUR
     Route: 041
     Dates: start: 20080221, end: 20080222

REACTIONS (2)
  - BLOOD CREATINE PHOSPHOKINASE INCREASED [None]
  - PYREXIA [None]
